FAERS Safety Report 11473684 (Version 1)
Quarter: 2015Q3

REPORT INFORMATION
  Report Type: Spontaneous
  Country: US (occurrence: US)
  Receive Date: 20150908
  Receipt Date: 20150908
  Transmission Date: 20151125
  Serious: No
  Sender: FDA-Public Use
  Company Number: US-ACTELION PHARMACEUTICALS US, INC.-A-NJ2015-114487

PATIENT
  Age: 43 Year
  Sex: Female

DRUGS (3)
  1. VELETRI [Suspect]
     Active Substance: EPOPROSTENOL
     Dosage: 38 NG/KG, PER MIN
     Route: 042
  2. VELETRI [Suspect]
     Active Substance: EPOPROSTENOL
     Indication: PULMONARY ARTERIAL HYPERTENSION
     Dosage: 30 NG/KG, PER MIN
     Route: 042
     Dates: start: 20130209
  3. OPSUMIT [Suspect]
     Active Substance: MACITENTAN
     Indication: PULMONARY ARTERIAL HYPERTENSION
     Dosage: 10 MG, QD
     Route: 048
     Dates: start: 20141005

REACTIONS (14)
  - Catheter site oedema [Unknown]
  - Presyncope [Unknown]
  - Headache [Unknown]
  - Catheter site rash [Unknown]
  - Dizziness [Unknown]
  - Catheter site pain [Unknown]
  - Abdominal distension [Unknown]
  - Abdominal tenderness [Unknown]
  - Catheter site discharge [Unknown]
  - Eye swelling [Unknown]
  - Abdominal pain [Unknown]
  - Catheter site haemorrhage [Unknown]
  - Liver function test abnormal [Unknown]
  - Catheter site bruise [Unknown]

NARRATIVE: CASE EVENT DATE: 20150228
